FAERS Safety Report 10616274 (Version 1)
Quarter: 2014Q4

REPORT INFORMATION
  Report Type: Report from Study
  Country: BE (occurrence: BE)
  Receive Date: 20141201
  Receipt Date: 20141201
  Transmission Date: 20150529
  Serious: Yes (Hospitalization, Other)
  Sender: FDA-Public Use
  Company Number: BE-ABBVIE-14K-013-1311925-00

PATIENT
  Age: 66 Year
  Sex: Male
  Weight: 73.9 kg

DRUGS (5)
  1. BYSTOLIC (NOBITEN) [Concomitant]
     Indication: HYPERTENSION
     Dosage: EVERY DAY
  2. VASEXTEN [Concomitant]
     Active Substance: BARNIDIPINE
     Indication: HYPERTENSION
     Dosage: EVERY DAY
  3. ZYLORIC [Concomitant]
     Active Substance: ALLOPURINOL
     Indication: GOUT
     Dosage: EVERY DAY
  4. HUMIRA [Suspect]
     Active Substance: ADALIMUMAB
     Indication: RHEUMATOID ARTHRITIS
     Route: 065
     Dates: start: 20100603
  5. TEVETEN [Concomitant]
     Active Substance: EPROSARTAN MESYLATE
     Indication: HYPERTENSION
     Dosage: 600/2.5MG, EVERY DAY

REACTIONS (3)
  - Chronic obstructive pulmonary disease [Unknown]
  - Decreased appetite [Recovered/Resolved]
  - Pneumonia [Recovered/Resolved]

NARRATIVE: CASE EVENT DATE: 20140620
